FAERS Safety Report 19585668 (Version 1)
Quarter: 2021Q3

REPORT INFORMATION
  Report Type: Report from Study
  Country: MA (occurrence: MA)
  Receive Date: 20210720
  Receipt Date: 20210720
  Transmission Date: 20211014
  Serious: Yes (Death)
  Sender: FDA-Public Use
  Company Number: MA-INCYTE CORPORATION-2021IN000418

PATIENT

DRUGS (3)
  1. JAKAVI [Suspect]
     Active Substance: RUXOLITINIB
     Dosage: UNK
     Route: 048
     Dates: start: 20210114
  2. JAKAVI [Suspect]
     Active Substance: RUXOLITINIB
     Dosage: 20 MG, BID
     Route: 048
     Dates: start: 20210115
  3. JAKAVI [Suspect]
     Active Substance: RUXOLITINIB
     Indication: MYELOFIBROSIS
     Dosage: 20 MG, BID
     Route: 048

REACTIONS (7)
  - Insomnia [Unknown]
  - Abdominal distension [Unknown]
  - White blood cell count increased [Unknown]
  - Pain [Unknown]
  - Stress [Unknown]
  - Death [Fatal]
  - Angiopathy [Unknown]

NARRATIVE: CASE EVENT DATE: 20210111
